FAERS Safety Report 4689234-9 (Version None)
Quarter: 2005Q2

REPORT INFORMATION
  Report Type: 
  Country: None (occurrence: None)
  Receive Date: 20050608
  Receipt Date: 20050209
  Transmission Date: 20051028
  Serious: No
  Sender: FDA-Public Use
  Company Number: 2005-BP-01154BP

PATIENT
  Age: 68 Year
  Sex: Female

DRUGS (4)
  1. SPIRIVA [Suspect]
     Indication: ASTHMA
     Dosage: (18 MCG), IH
     Route: 055
     Dates: start: 20040922, end: 20050120
  2. SPIRIVA [Suspect]
     Indication: EMPHYSEMA
     Dosage: (18 MCG), IH
     Route: 055
     Dates: start: 20040922, end: 20050120
  3. FORADIL [Concomitant]
  4. VITAMINS [Concomitant]

REACTIONS (1)
  - ASTHMA [None]
